FAERS Safety Report 20577091 (Version 1)
Quarter: 2022Q1

REPORT INFORMATION
  Report Type: Spontaneous
  Country: US (occurrence: None)
  Receive Date: 20220309
  Receipt Date: 20220309
  Transmission Date: 20220424
  Serious: No
  Sender: FDA-Public Use
  Company Number: None

PATIENT
  Age: 50 Year
  Sex: Male
  Weight: 120.2 kg

DRUGS (1)
  1. XELJANZ XR [Suspect]
     Active Substance: TOFACITINIB CITRATE
     Indication: Psoriatic arthropathy
     Dosage: TAKE 1 TABLET BY MOUTH DAILY  AS DIRECTED
     Route: 048
     Dates: start: 202112

REACTIONS (8)
  - Blood pressure increased [None]
  - Sinusitis [None]
  - Urinary tract infection [None]
  - Malaise [None]
  - Arthralgia [None]
  - Sleep disorder [None]
  - Muscle spasms [None]
  - Peripheral swelling [None]
